FAERS Safety Report 7396753-3 (Version None)
Quarter: 2011Q2

REPORT INFORMATION
  Report Type: 
  Country: None (occurrence: None)
  Receive Date: 20110406
  Receipt Date: 20110323
  Transmission Date: 20111010
  Serious: Yes (Other)
  Sender: FDA-Public Use
  Company Number: CA-JNJFOC-20110310826

PATIENT
  Sex: Female
  Weight: 66.7 kg

DRUGS (1)
  1. REMICADE [Suspect]
     Indication: PRODUCT USED FOR UNKNOWN INDICATION
     Route: 042

REACTIONS (4)
  - PALLOR [None]
  - DIZZINESS [None]
  - PRESYNCOPE [None]
  - VISUAL IMPAIRMENT [None]
